FAERS Safety Report 5610521-1 (Version None)
Quarter: 2008Q1

REPORT INFORMATION
  Report Type: 
  Country: None (occurrence: None)
  Receive Date: 20080201
  Receipt Date: 20080125
  Transmission Date: 20080703
  Serious: Yes (Other)
  Sender: FDA-Public Use
  Company Number: JP-BRISTOL-MYERS SQUIBB COMPANY-14054738

PATIENT
  Age: 70 Year
  Sex: Male

DRUGS (3)
  1. SINEMET [Suspect]
     Indication: PARKINSONISM
     Dosage: 100MG/D 14-MAY-2007 TO 08-JUL-2007, DOSE INCREASED TO 200MG PER DAY
     Route: 048
     Dates: start: 20070709, end: 20080118
  2. SYMMETREL [Suspect]
  3. HALCION [Concomitant]

REACTIONS (1)
  - GYNAECOMASTIA [None]
